FAERS Safety Report 5197757-1 (Version None)
Quarter: 2006Q4

REPORT INFORMATION
  Report Type: 
  Country: None (occurrence: None)
  Receive Date: 20061228
  Receipt Date: 20061214
  Transmission Date: 20070319
  Serious: Yes (Death, Hospitalization)
  Sender: FDA-Public Use
  Company Number: 234105

PATIENT
  Age: 59 Year
  Sex: Female

DRUGS (4)
  1. AVASTIN [Suspect]
     Indication: COLON CANCER METASTATIC
     Dosage: 400 MG, Q3W, INTRAVENOUS
     Route: 042
     Dates: start: 20050708
  2. CAPECITABINE (CAPECITABINE) [Suspect]
     Indication: COLON CANCER METASTATIC
     Dosage: 3500, Q4W, INTRAVENOUS
     Route: 042
     Dates: start: 20050708
  3. OXALIPLATIN [Suspect]
     Indication: COLON CANCER METASTATIC
     Dosage: 100 MG, Q3W, INTRAVENOUS
     Route: 042
     Dates: start: 20050920
  4. IRINOTECAN HCL [Suspect]
     Indication: COLON CANCER METASTATIC
     Dosage: 80 MG/KG, Q3W, INTRAVENOUS
     Route: 042
     Dates: start: 20061124

REACTIONS (2)
  - DIARRHOEA [None]
  - PYREXIA [None]
